FAERS Safety Report 6075735-8 (Version None)
Quarter: 2009Q1

REPORT INFORMATION
  Report Type: 
  Country: None (occurrence: None)
  Receive Date: 20090212
  Receipt Date: 20090205
  Transmission Date: 20090719
  Serious: Yes (Other)
  Sender: FDA-Public Use
  Company Number: US-AMGEN-QUU332118

PATIENT
  Sex: Male

DRUGS (4)
  1. NEULASTA [Suspect]
     Indication: CHEMOTHERAPY
     Route: 065
     Dates: start: 20090116
  2. PLATINOL [Concomitant]
  3. GEMZAR [Concomitant]
  4. ASPIRIN [Concomitant]

REACTIONS (1)
  - PLATELET COUNT DECREASED [None]
